FAERS Safety Report 12880909 (Version 1)
Quarter: 2016Q4

REPORT INFORMATION
  Report Type: Spontaneous
  Country: US (occurrence: US)
  Receive Date: 20161024
  Receipt Date: 20161024
  Transmission Date: 20170207
  Serious: Yes (Life-Threatening, Hospitalization)
  Sender: FDA-Public Use
  Company Number: None

PATIENT
  Age: 1 Year
  Sex: Male
  Weight: 9 kg

DRUGS (7)
  1. BABY TEETHING (HYLAND HOMEOPATHIC) [Suspect]
     Active Substance: HOMEOPATHICS
     Indication: TEETHING
     Dosage: ?          QUANTITY:1 1/4^ RIBBON;OTHER FREQUENCY:15 MINUTES;?
     Route: 061
     Dates: start: 20160701, end: 20160831
  2. POLY-VI-SOL CAMILIA TEETHING DROPS [Concomitant]
  3. TEETHING GEL MULTI VITAMIN [Concomitant]
  4. BABY TEETHING (HYLAND HOMEOPATHIC) [Suspect]
     Active Substance: HOMEOPATHICS
     Indication: TEETHING
     Dosage: ?          OTHER STRENGTH:QUICK DISSOLVING;QUANTITY:135 TABLET(S);?
     Route: 048
     Dates: start: 20151001, end: 20160801
  5. NIGHTIME TEETHING TABLETS [Concomitant]
  6. MIRALAX GLYCERIN SUPPOSITORIES MOMMYS BLISS [Concomitant]
  7. CONSTIPATON EASE LIQUID DIETARY SUPPLEMENT [Concomitant]

REACTIONS (5)
  - Seizure [None]
  - Skin discolouration [None]
  - Respiratory arrest [None]
  - Product quality issue [None]
  - Feeling abnormal [None]

NARRATIVE: CASE EVENT DATE: 20160831
